FAERS Safety Report 5696543-3 (Version None)
Quarter: 2008Q2

REPORT INFORMATION
  Report Type: 
  Country: None (occurrence: None)
  Receive Date: 20080404
  Receipt Date: 20080404
  Transmission Date: 20081010
  Serious: No
  Sender: FDA-Public Use
  Company Number: None

PATIENT
  Age: 34 Year
  Sex: Female
  Weight: 86.1834 kg

DRUGS (2)
  1. SINGULAIR [Suspect]
     Indication: DYSPNOEA
     Dosage: 10 MG ONCE A NIGHT PO
     Route: 048
     Dates: start: 20071129, end: 20080328
  2. SINGULAIR [Suspect]
     Indication: MYCOTIC ALLERGY
     Dosage: 10 MG ONCE A NIGHT PO
     Route: 048
     Dates: start: 20071129, end: 20080328

REACTIONS (14)
  - ABDOMINAL PAIN UPPER [None]
  - AGGRESSION [None]
  - AGITATION [None]
  - ANXIETY [None]
  - CRYING [None]
  - DEPRESSION [None]
  - FAMILY STRESS [None]
  - HALLUCINATION [None]
  - NO THERAPEUTIC RESPONSE [None]
  - PALPITATIONS [None]
  - PANIC ATTACK [None]
  - PHOTOPSIA [None]
  - SUICIDAL IDEATION [None]
  - THINKING ABNORMAL [None]
